FAERS Safety Report 7716180-6 (Version None)
Quarter: 2011Q3

REPORT INFORMATION
  Report Type: 
  Country: None (occurrence: None)
  Receive Date: 20110811
  Receipt Date: 20110516
  Transmission Date: 20111222
  Serious: Yes (Other)
  Sender: FDA-Public Use
  Company Number: 2011028657

PATIENT
  Sex: Male
  Weight: 47.6277 kg

DRUGS (2)
  1. BERINERT [Suspect]
     Indication: ENZYME ABNORMALITY
     Dosage: (840 IU PRN, 16.8 ML AS NEEDED AT A RATE OF 4 ML PER MIN INTRAVENOUS (NOT OTHERWISE SPECIFIED)
     Route: 042
     Dates: start: 20100709
  2. ZYRTEC [Concomitant]

REACTIONS (1)
  - HEREDITARY ANGIOEDEMA [None]
